FAERS Safety Report 6476759-9 (Version None)
Quarter: 2009Q4

REPORT INFORMATION
  Report Type: 
  Country: None (occurrence: None)
  Receive Date: 20091207
  Receipt Date: 20091127
  Transmission Date: 20100525
  Serious: Yes (Other)
  Sender: FDA-Public Use
  Company Number: PHHY2009GB23207

PATIENT
  Sex: Female

DRUGS (5)
  1. CLOZARIL [Suspect]
     Indication: SCHIZOPHRENIA
     Dosage: 100 MG
     Dates: start: 20070613, end: 20070629
  2. CLOZARIL [Suspect]
     Dosage: 100 MG
     Dates: start: 20091030
  3. CLONAZEPAM [Suspect]
     Dosage: 0.5 MG - 1.5 MG
     Dates: start: 20090608
  4. OLANZAPINE [Concomitant]
     Indication: SCHIZOPHRENIA
  5. LAMOTRIGINE [Concomitant]
     Indication: SCHIZOPHRENIA

REACTIONS (5)
  - ACCIDENTAL EXPOSURE [None]
  - BLOOD PRESSURE INCREASED [None]
  - HEART RATE INCREASED [None]
  - OBESITY [None]
  - VOMITING [None]
